FAERS Safety Report 12926878 (Version 2)
Quarter: 2016Q4

REPORT INFORMATION
  Report Type: Spontaneous
  Country: GB (occurrence: GB)
  Receive Date: 20161109
  Receipt Date: 20161111
  Transmission Date: 20170207
  Serious: Yes (Other)
  Sender: FDA-Public Use
  Company Number: GB-AMGEN-GBRSP2016153708

PATIENT

DRUGS (3)
  1. ONE ALPHA [Concomitant]
     Active Substance: ALFACALCIDOL
  2. SENSIPAR [Suspect]
     Active Substance: CINACALCET HYDROCHLORIDE
     Indication: PARATHYROID DISORDER
     Dosage: UNK UNK, UNK
     Route: 065
  3. RENAGEL [Concomitant]
     Active Substance: SEVELAMER HYDROCHLORIDE

REACTIONS (7)
  - Nausea [Unknown]
  - Blood parathyroid hormone abnormal [Unknown]
  - Phobia [Unknown]
  - Transplant [Unknown]
  - Bone disorder [Unknown]
  - Vomiting [Unknown]
  - Depression [Unknown]
